FAERS Safety Report 9233393 (Version 1)
Quarter: 2013Q2

REPORT INFORMATION
  Report Type: Spontaneous
  Country: JP (occurrence: JP)
  Receive Date: 20130416
  Receipt Date: 20130416
  Transmission Date: 20140414
  Serious: Yes (Other)
  Sender: FDA-Public Use
  Company Number: JP-PFIZER INC-2013117625

PATIENT
  Sex: Male

DRUGS (2)
  1. FOSPHENYTOIN SODIUM [Suspect]
     Indication: ALCOHOLIC SEIZURE
     Dosage: UNK
  2. ALEVIATIN [Concomitant]
     Dosage: UNK
     Route: 048

REACTIONS (1)
  - Rhabdomyolysis [Recovered/Resolved]
